FAERS Safety Report 16773695 (Version 1)
Quarter: 2019Q4

REPORT INFORMATION
  Report Type: Spontaneous
  Country: US (occurrence: US)
  Receive Date: 20190904
  Receipt Date: 20190904
  Transmission Date: 20200122
  Serious: Yes (Death)
  Sender: FDA-Public Use
  Company Number: None

PATIENT
  Age: 49 Year
  Sex: Female

DRUGS (8)
  1. FLUCONAZOLE. [Concomitant]
     Active Substance: FLUCONAZOLE
  2. DICLOFENAC [Concomitant]
     Active Substance: DICLOFENAC
  3. TOPIRAMATE. [Concomitant]
     Active Substance: TOPIRAMATE
  4. DRONABINOL. [Concomitant]
     Active Substance: DRONABINOL
  5. IBRANCE [Suspect]
     Active Substance: PALBOCICLIB
     Indication: BREAST CANCER
     Route: 048
  6. LEVOTHYROXINE. [Concomitant]
     Active Substance: LEVOTHYROXINE
  7. LETROZOLE. [Concomitant]
     Active Substance: LETROZOLE
  8. RANITIDINE. [Concomitant]
     Active Substance: RANITIDINE

REACTIONS (1)
  - Death [None]

NARRATIVE: CASE EVENT DATE: 20190903
